FAERS Safety Report 5693131-X (Version None)
Quarter: 2008Q2

REPORT INFORMATION
  Report Type: 
  Country: None (occurrence: None)
  Receive Date: 20080402
  Receipt Date: 20080402
  Transmission Date: 20081010
  Serious: No
  Sender: FDA-Public Use
  Company Number: None

PATIENT
  Age: 66 Year
  Sex: Male
  Weight: 83.9154 kg

DRUGS (1)
  1. ADVART STANDARD ? [Suspect]
     Indication: PROSTATOMEGALY
     Dosage: ONE PILL ONCE A DAY PO
     Route: 048
     Dates: start: 20021101, end: 20030301

REACTIONS (2)
  - CONDITION AGGRAVATED [None]
  - ERECTILE DYSFUNCTION [None]
